FAERS Safety Report 5875044-3 (Version None)
Quarter: 2008Q3

REPORT INFORMATION
  Report Type: 
  Country: None (occurrence: None)
  Receive Date: 20080909
  Receipt Date: 20080829
  Transmission Date: 20090109
  Serious: Yes (Other)
  Sender: FDA-Public Use
  Company Number: US-BAYER-200813577BCC

PATIENT
  Sex: Male

DRUGS (1)
  1. ALKA-SELTZER [Suspect]
     Indication: DRUG USE FOR UNKNOWN INDICATION
     Route: 048
     Dates: start: 19910101

REACTIONS (1)
  - ANAPHYLACTIC SHOCK [None]
